FAERS Safety Report 23321983 (Version 1)
Quarter: 2023Q4

REPORT INFORMATION
  Report Type: Spontaneous
  Country: US (occurrence: None)
  Receive Date: 20231220
  Receipt Date: 20231220
  Transmission Date: 20240110
  Serious: No
  Sender: FDA-Public Use
  Company Number: None

PATIENT
  Sex: Male

DRUGS (3)
  1. DEFERASIROX [Suspect]
     Active Substance: DEFERASIROX
     Indication: Sickle cell disease
     Dosage: FREQUENCY : DAILY;?
     Route: 048
     Dates: start: 202305
  2. EXJADE [Concomitant]
     Active Substance: DEFERASIROX
  3. OXBRYTA [Concomitant]
     Active Substance: VOXELOTOR

REACTIONS (2)
  - Sickle cell anaemia with crisis [None]
  - Diarrhoea [None]
